FAERS Safety Report 7420288-2 (Version None)
Quarter: 2011Q2

REPORT INFORMATION
  Report Type: 
  Country: None (occurrence: None)
  Receive Date: 20110418
  Receipt Date: 20110406
  Transmission Date: 20111010
  Serious: Yes (Other)
  Sender: FDA-Public Use
  Company Number: PHHY2011DE29290

PATIENT
  Sex: Female

DRUGS (1)
  1. ZOMETA [Suspect]
     Dosage: 4 MG, EVERY 4 WEEKS
     Route: 042
     Dates: start: 20091014, end: 20100217

REACTIONS (7)
  - DYSPNOEA [None]
  - NEOPLASM MALIGNANT [None]
  - PLEURAL EFFUSION [None]
  - CHEST PAIN [None]
  - OSTEOCHONDROSIS [None]
  - GENERAL PHYSICAL HEALTH DETERIORATION [None]
  - METASTASES TO SPINE [None]
